FAERS Safety Report 19518344 (Version 1)
Quarter: 2021Q3

REPORT INFORMATION
  Report Type: Spontaneous
  Country: US (occurrence: US)
  Receive Date: 20210709
  Receipt Date: 20210709
  Transmission Date: 20211014
  Serious: Yes (Hospitalization, Disabling, Other)
  Sender: FDA-Public Use
  Company Number: None

PATIENT
  Sex: Female
  Weight: 72.12 kg

DRUGS (12)
  1. EZEMEMBINE [Concomitant]
  2. VITAMIN B [Suspect]
     Active Substance: VITAMIN B
  3. VITAMIN C [Concomitant]
     Active Substance: ASCORBIC ACID
  4. NITRITE OXIDE [Concomitant]
  5. LIOTHYRENE [Concomitant]
  6. VITAMIN D [Concomitant]
     Active Substance: VITAMIN D NOS
  7. COPPER [Concomitant]
     Active Substance: COPPER
  8. ALPRAZOLAM. [Suspect]
     Active Substance: ALPRAZOLAM
     Indication: ANXIETY
     Route: 048
     Dates: start: 20040501, end: 20180515
  9. ZINC. [Concomitant]
     Active Substance: ZINC
  10. ALPRAZOLAM. [Suspect]
     Active Substance: ALPRAZOLAM
     Indication: PANIC ATTACK
     Route: 048
     Dates: start: 20040501, end: 20180515
  11. LOSARTAN. [Concomitant]
     Active Substance: LOSARTAN
  12. MULTI VITAMIN [Concomitant]
     Active Substance: VITAMINS

REACTIONS (3)
  - Diarrhoea [None]
  - Initial insomnia [None]
  - Hypovitaminosis [None]
